FAERS Safety Report 24155173 (Version 1)
Quarter: 2024Q3

REPORT INFORMATION
  Report Type: Spontaneous
  Country: CN (occurrence: CN)
  Receive Date: 20240731
  Receipt Date: 20240731
  Transmission Date: 20241017
  Serious: Yes (Hospitalization)
  Sender: ROCHE
  Company Number: CN-CHEPLA-2024009318

PATIENT
  Age: 65 Year
  Sex: Male
  Weight: 61 kg

DRUGS (3)
  1. BEVACIZUMAB [Suspect]
     Active Substance: BEVACIZUMAB
     Indication: Rectal cancer stage IV
     Dosage: APPROVAL NO. GYZZ S20200013 ?INTRAVENOUS DRIP?QD
     Route: 042
     Dates: start: 20240706, end: 20240706
  2. CAPECITABINE [Suspect]
     Active Substance: CAPECITABINE
     Indication: Rectal cancer stage IV
     Dosage: APPROVAL NO. GYZZ H20073024 ?BID
     Route: 048
     Dates: start: 20240706, end: 20240707
  3. IRINOTECAN HYDROCHLORIDE [Suspect]
     Active Substance: IRINOTECAN HYDROCHLORIDE
     Indication: Rectal cancer stage IV
     Dosage: APPROVAL NO. GYZZ H20143127 ?INTRAVENOUS DRIP?QD
     Route: 042
     Dates: start: 20240706, end: 20240706

REACTIONS (1)
  - Myelosuppression [Recovering/Resolving]

NARRATIVE: CASE EVENT DATE: 20240708
